FAERS Safety Report 18252480 (Version 1)
Quarter: 2020Q3

REPORT INFORMATION
  Report Type: Spontaneous
  Country: IR (occurrence: IR)
  Receive Date: 20200910
  Receipt Date: 20200910
  Transmission Date: 20201103
  Serious: Yes (Other)
  Sender: FDA-Public Use
  Company Number: IR-CASPER PHARMA LLC-2020CAS000455

PATIENT
  Age: 15 Month
  Sex: Female

DRUGS (3)
  1. PENICILLIN G BENZATHINE [Suspect]
     Active Substance: PENICILLIN G BENZATHINE
     Dosage: POTASSIUM PENICILLIN G 300,000 IU
     Route: 030
  2. PENICILLIN G BENZATHINE [Suspect]
     Active Substance: PENICILLIN G BENZATHINE
     Indication: UPPER RESPIRATORY TRACT INFECTION
     Dosage: BENZATHINE PENICILLIN G 600,000 IU
     Route: 030
  3. PENICILLIN G BENZATHINE [Suspect]
     Active Substance: PENICILLIN G BENZATHINE
     Dosage: PROCAINE PENICILLIN G 300,000 IU
     Route: 030

REACTIONS (2)
  - Embolia cutis medicamentosa [Unknown]
  - Compartment syndrome [Unknown]
